FAERS Safety Report 7247606 (Version 2)
Quarter: 2014Q2

REPORT INFORMATION
  Report Type: Spontaneous
  Country: US (occurrence: None)
  Receive Date: 20091224
  Receipt Date: 20140416
  Transmission Date: 20141212
  Serious: Yes (Hospitalization)
  Sender: FDA-Public Use
  Company Number: AUR-APL-2009-01218

PATIENT
  Age: 75 Year
  Sex: Female

DRUGS (3)
  1. PAROXETINE [Suspect]
     Indication: PRODUCT USED FOR UNKNOWN INDICATION
     Dosage: UNK - UNK - UNK
     Dates: start: 20090513, end: 20090813
  2. LYRICA (PREGABALIN) [Suspect]
     Indication: PRODUCT USED FOR UNKNOWN INDICATION
     Dates: start: 20090513, end: 20090813
  3. ANTRA (OMEPRAZOLE) [Concomitant]

REACTIONS (2)
  - Presyncope [None]
  - Vision blurred [None]
